FAERS Safety Report 5803668-8 (Version None)
Quarter: 2008Q3

REPORT INFORMATION
  Report Type: 
  Country: None (occurrence: None)
  Receive Date: 20080708
  Receipt Date: 20070702
  Transmission Date: 20090109
  Serious: No
  Sender: FDA-Public Use
  Company Number: US-AMGEN-KDL232164

PATIENT
  Sex: Female

DRUGS (3)
  1. KINERET [Suspect]
     Indication: POLYARTHRITIS
     Route: 058
     Dates: start: 20070618
  2. PLAQUENIL [Concomitant]
     Route: 048
     Dates: start: 20020101
  3. METHOTREXATE [Concomitant]
     Route: 048
     Dates: start: 20070101

REACTIONS (2)
  - INJECTION SITE ERYTHEMA [None]
  - INJECTION SITE URTICARIA [None]
